FAERS Safety Report 14689394 (Version 1)
Quarter: 2018Q1

REPORT INFORMATION
  Report Type: Spontaneous
  Country: IL (occurrence: IL)
  Receive Date: 20180328
  Receipt Date: 20180328
  Transmission Date: 20180509
  Serious: Yes (Other)
  Sender: FDA-Public Use
  Company Number: IL-009507513-1801ISR001145

PATIENT
  Sex: Female

DRUGS (1)
  1. KEYTRUDA [Suspect]
     Active Substance: PEMBROLIZUMAB
     Indication: MALIGNANT MELANOMA
     Dosage: UNK
     Dates: end: 20171202

REACTIONS (11)
  - White blood cell count increased [Unknown]
  - Headache [Not Recovered/Not Resolved]
  - Nausea [Not Recovered/Not Resolved]
  - Eosinophil percentage increased [Unknown]
  - Pain [Unknown]
  - Neutrophil percentage decreased [Unknown]
  - Mean platelet volume increased [Unknown]
  - Monocyte count increased [Unknown]
  - Eosinophil count increased [Unknown]
  - Bacterial diarrhoea [Not Recovered/Not Resolved]
  - Infection [Not Recovered/Not Resolved]

NARRATIVE: CASE EVENT DATE: 2018
